FAERS Safety Report 7432322-4 (Version None)
Quarter: 2011Q2

REPORT INFORMATION
  Report Type: 
  Country: None (occurrence: None)
  Receive Date: 20110422
  Receipt Date: 20110408
  Transmission Date: 20111010
  Serious: Yes (Hospitalization)
  Sender: FDA-Public Use
  Company Number: US-JNJFOC-20110404694

PATIENT
  Sex: Male
  Weight: 99.11 kg

DRUGS (4)
  1. INFLIXIMAB, RECOMBINANT [Suspect]
     Indication: PSORIASIS
     Route: 042
  2. GOLIMUMAB [Suspect]
     Indication: PSORIASIS
     Route: 058
  3. CORTICOSTEROIDS NOS [Concomitant]
     Route: 061
  4. INFLIXIMAB, RECOMBINANT [Suspect]
     Route: 042

REACTIONS (2)
  - LUNG INFECTION [None]
  - STAPHYLOCOCCAL INFECTION [None]
